FAERS Safety Report 5678383-4 (Version None)
Quarter: 2008Q1

REPORT INFORMATION
  Report Type: 
  Country: None (occurrence: None)
  Receive Date: 20080320
  Receipt Date: 20080310
  Transmission Date: 20080703
  Serious: Yes (Hospitalization, Other)
  Sender: FDA-Public Use
  Company Number: 2007S1012699

PATIENT
  Age: 44 Year
  Sex: Female

DRUGS (5)
  1. FENTANYL TRANSDERMAL SYSTEM [Suspect]
     Indication: BACK PAIN
     Dosage: 75 UG;EVERY HOUR;TRANSDERMAL
     Route: 062
     Dates: start: 20071112, end: 20071126
  2. FENTANYL TRANSDERMAL SYSTEM [Suspect]
     Indication: BACK PAIN
     Dosage: 50 UG/HR;EVERY OTHER DAY; TRANSDERMAL
     Route: 062
     Dates: start: 20071126, end: 20071129
  3. FENTANYL TRANSDERMAL SYSTEM [Suspect]
     Indication: BACK PAIN
     Dosage: 100 UG;EVERY HOUR;TRANSDERMAL
     Route: 062
     Dates: end: 20071112
  4. SYNTHROID [Concomitant]
  5. PROZAC /00724401/ [Concomitant]

REACTIONS (7)
  - DRUG DEPENDENCE [None]
  - DRUG INEFFECTIVE [None]
  - DRUG WITHDRAWAL SYNDROME [None]
  - MUSCLE TWITCHING [None]
  - PHARMACEUTICAL PRODUCT COMPLAINT [None]
  - RESTLESSNESS [None]
  - THERAPY REGIMEN CHANGED [None]
